FAERS Safety Report 6618798-0 (Version None)
Quarter: 2010Q1

REPORT INFORMATION
  Report Type: 
  Country: None (occurrence: None)
  Receive Date: 20100308
  Receipt Date: 20100222
  Transmission Date: 20100710
  Serious: Yes (Hospitalization, Other)
  Sender: FDA-Public Use
  Company Number: US-CELGENEUS-163-21880-10020125

PATIENT
  Age: 67 Year
  Sex: Female
  Weight: 84.9 kg

DRUGS (11)
  1. REVLIMID [Suspect]
     Route: 048
     Dates: start: 20100119, end: 20100129
  2. CETUXIMAB [Suspect]
     Route: 065
     Dates: start: 20100119
  3. CETUXIMAB [Suspect]
     Route: 065
     Dates: start: 20100126
  4. CETUXIMAB [Suspect]
     Route: 065
     Dates: start: 20100209
  5. MINOCYCLINE HCL [Concomitant]
     Indication: DRUG USE FOR UNKNOWN INDICATION
     Route: 065
  6. ASPIRIN [Concomitant]
     Indication: DRUG USE FOR UNKNOWN INDICATION
     Route: 065
     Dates: start: 20100119
  7. ADVAIR DISKUS 100/50 [Concomitant]
     Indication: DRUG USE FOR UNKNOWN INDICATION
     Route: 055
  8. VICODIN [Concomitant]
     Indication: PAIN
     Dosage: 5MG-500MG
     Route: 065
  9. LOPERAMIDE [Concomitant]
     Indication: DRUG USE FOR UNKNOWN INDICATION
     Route: 048
  10. PREDNISONE [Concomitant]
     Indication: DRUG USE FOR UNKNOWN INDICATION
     Dosage: 40MG, 30MG, 20MG, 10MG
     Route: 065
  11. MOTRIN [Concomitant]
     Indication: PAIN
     Route: 048

REACTIONS (5)
  - HAEMOGLOBIN DECREASED [None]
  - HYPOALBUMINAEMIA [None]
  - HYPOCALCAEMIA [None]
  - PLATELET COUNT DECREASED [None]
  - UROSEPSIS [None]
